FAERS Safety Report 8431478-4 (Version None)
Quarter: 2012Q2

REPORT INFORMATION
  Report Type: 
  Country: None (occurrence: None)
  Receive Date: 20120607
  Receipt Date: 20120607
  Transmission Date: 20120825
  Serious: Yes (Hospitalization, Disabling, Other)
  Sender: FDA-Public Use
  Company Number: None

PATIENT
  Age: 37 Year
  Sex: Female
  Weight: 72.5755 kg

DRUGS (1)
  1. AZITHROMYCIN [Suspect]
     Indication: INFECTION
     Dosage: TAK 2 AT ONCE 1 TB DAILY 4 DAYS
     Dates: start: 20111119

REACTIONS (9)
  - SKIN DISCOLOURATION [None]
  - PYREXIA [None]
  - HEPATIC PAIN [None]
  - HYPERHIDROSIS [None]
  - ANGINA PECTORIS [None]
  - VOMITING [None]
  - ABDOMINAL PAIN UPPER [None]
  - RASH [None]
  - PRURITUS [None]
